FAERS Safety Report 18649131 (Version 1)
Quarter: 2020Q4

REPORT INFORMATION
  Report Type: Spontaneous
  Country: US (occurrence: US)
  Receive Date: 20201221
  Receipt Date: 20201221
  Transmission Date: 20210114
  Serious: Yes (Life-Threatening, Hospitalization)
  Sender: FDA-Public Use
  Company Number: None

PATIENT
  Age: 65 Year
  Sex: Female
  Weight: 69.85 kg

DRUGS (1)
  1. CEPHALEXIN (CEPHALEXIN 500MG CAP) [Suspect]
     Active Substance: CEPHALEXIN
     Indication: ANTIBIOTIC THERAPY
     Route: 048
     Dates: start: 20200605, end: 20200607

REACTIONS (9)
  - Dysphagia [None]
  - Urticaria [None]
  - Nausea [None]
  - Rash [None]
  - Arthralgia [None]
  - Vomiting [None]
  - Anaphylactic reaction [None]
  - Pruritus [None]
  - Dyspnoea [None]

NARRATIVE: CASE EVENT DATE: 20200607
